FAERS Safety Report 11528157 (Version 1)
Quarter: 2015Q3

REPORT INFORMATION
  Report Type: Spontaneous
  Country: FI (occurrence: FI)
  Receive Date: 20150921
  Receipt Date: 20150921
  Transmission Date: 20151125
  Serious: Yes (Other)
  Sender: FDA-Public Use
  Company Number: FI-AMGEN-FINSP2015096270

PATIENT
  Age: 56 Year
  Sex: Male

DRUGS (1)
  1. ENBREL [Suspect]
     Active Substance: ETANERCEPT
     Indication: RHEUMATOID ARTHRITIS
     Dosage: UNK
     Route: 065
     Dates: start: 2009, end: 20141215

REACTIONS (4)
  - Aspartate aminotransferase increased [Unknown]
  - Hepatitis [Recovered/Resolved]
  - Alanine aminotransferase increased [Unknown]
  - Fibrosis [Unknown]

NARRATIVE: CASE EVENT DATE: 2014
